FAERS Safety Report 6301425-X (Version None)
Quarter: 2009Q3

REPORT INFORMATION
  Report Type: 
  Country: None (occurrence: None)
  Receive Date: 20090806
  Receipt Date: 20090806
  Transmission Date: 20100115
  Serious: Yes (Other)
  Sender: FDA-Public Use
  Company Number: None

PATIENT
  Age: 27 Year
  Sex: Male
  Weight: 105.6881 kg

DRUGS (1)
  1. SX SLIM XTREME AX ANABOLIC XTREME [Suspect]
     Indication: WEIGHT CONTROL
     Dosage: 1 PILL, PER DAY, PO
     Route: 048
     Dates: start: 20090801, end: 20090804

REACTIONS (6)
  - CHEST DISCOMFORT [None]
  - CHEST PAIN [None]
  - COMPULSIVE LIP BITING [None]
  - DRY MOUTH [None]
  - DYSPNOEA [None]
  - HEART RATE INCREASED [None]
